FAERS Safety Report 16614670 (Version 1)
Quarter: 2019Q3

REPORT INFORMATION
  Report Type: Spontaneous
  Country: DZ (occurrence: DZ)
  Receive Date: 20190723
  Receipt Date: 20190723
  Transmission Date: 20191004
  Serious: Yes (Life-Threatening)
  Sender: FDA-Public Use
  Company Number: DZ-SA-2019SA197149

PATIENT
  Age: 35 Year
  Sex: Female
  Weight: 79 kg

DRUGS (2)
  1. NOVORAPID [Suspect]
     Active Substance: INSULIN ASPART
     Indication: DIABETES MELLITUS
     Dosage: 14 IUX, TID
     Route: 058
     Dates: start: 2017, end: 20190403
  2. LANTUS [Suspect]
     Active Substance: INSULIN GLARGINE
     Indication: DIABETES MELLITUS
     Dosage: 25 IU, UNK
     Route: 058
     Dates: start: 2017, end: 20190403

REACTIONS (5)
  - Injection site granuloma [Recovered/Resolved]
  - Injection site urticaria [Recovered/Resolved]
  - Dysphonia [Recovered/Resolved]
  - Loss of consciousness [Recovered/Resolved]
  - Laryngeal dyspnoea [Recovered/Resolved]

NARRATIVE: CASE EVENT DATE: 20190403
